FAERS Safety Report 17611392 (Version 1)
Quarter: 2020Q2

REPORT INFORMATION
  Report Type: Report from Study
  Country: US (occurrence: US)
  Receive Date: 20200401
  Receipt Date: 20200401
  Transmission Date: 20200713
  Serious: Yes (Hospitalization, Other)
  Sender: FDA-Public Use
  Company Number: US-GILEAD-2020-0456888

PATIENT
  Sex: Male

DRUGS (1)
  1. AMBRISENTAN [Suspect]
     Active Substance: AMBRISENTAN
     Indication: PULMONARY ARTERIAL HYPERTENSION
     Dosage: 5 MG
     Route: 065
     Dates: start: 20150710

REACTIONS (3)
  - Colectomy total [Not Recovered/Not Resolved]
  - Procedural complication [Not Recovered/Not Resolved]
  - Feeding tube user [Not Recovered/Not Resolved]
